FAERS Safety Report 25499915 (Version 1)
Quarter: 2025Q3

REPORT INFORMATION
  Report Type: Other
  Country: SD (occurrence: SD)
  Receive Date: 20250701
  Receipt Date: 20250701
  Transmission Date: 20251021
  Serious: Yes (Death, Hospitalization)
  Sender: ALVOGEN
  Company Number: SD-ALVOGEN-2025098240

PATIENT
  Age: 25 Year
  Sex: Female

DRUGS (1)
  1. DEXAMETHASONE [Suspect]
     Active Substance: DEXAMETHASONE
     Indication: Product used for unknown indication
     Dosage: FOR 6 MONTHS

REACTIONS (4)
  - Meningitis tuberculous [Fatal]
  - Intracranial pressure increased [Fatal]
  - Immunosuppression [Fatal]
  - Prescription drug used without a prescription [Unknown]
